FAERS Safety Report 4484187-0 (Version None)
Quarter: 2004Q4

REPORT INFORMATION
  Report Type: 
  Country: None (occurrence: None)
  Receive Date: 20041025
  Receipt Date: 20041018
  Transmission Date: 20050328
  Serious: Yes (Hospitalization)
  Sender: FDA-Public Use
  Company Number: US-MERCK-0410USA02707

PATIENT
  Age: 88 Year
  Sex: Female

DRUGS (7)
  1. VIOXX [Suspect]
     Route: 048
     Dates: start: 20030901, end: 20040920
  2. ATENOLOL [Concomitant]
     Route: 065
  3. PRINIVIL [Concomitant]
     Route: 048
  4. LIPITOR [Concomitant]
     Route: 065
  5. LEVOXYL [Concomitant]
     Route: 065
  6. KLOR-CON [Concomitant]
     Route: 065
  7. HYDRODIURIL [Concomitant]
     Route: 048

REACTIONS (6)
  - ANAEMIA [None]
  - GALLBLADDER DISORDER [None]
  - HERPES ZOSTER [None]
  - LIVER DISORDER [None]
  - PNEUMONIA [None]
  - URINARY TRACT INFECTION [None]
